FAERS Safety Report 9769563 (Version 1)
Quarter: 2013Q4

REPORT INFORMATION
  Report Type: Spontaneous
  Country: US (occurrence: US)
  Receive Date: 20131218
  Receipt Date: 20131218
  Transmission Date: 20140711
  Serious: No
  Sender: FDA-Public Use
  Company Number: US-009507513-1312USA003548

PATIENT
  Age: 34 Year
  Sex: Male

DRUGS (10)
  1. PEGINTRON [Suspect]
     Indication: MANTLE CELL LYMPHOMA
     Dosage: 180 MICROGRAM PER WEEK, 3 WEEKS ON AND ONE WEEK OFF
     Route: 058
     Dates: start: 200704
  2. PEGINTRON [Suspect]
     Dosage: 180 MICROGRAM, QW
     Route: 058
     Dates: start: 200602, end: 200608
  3. PEGINTRON [Suspect]
     Dosage: 180 MICROGRAM, QW
     Route: 058
     Dates: start: 200909
  4. PEGINTRON [Suspect]
     Dosage: 144 MICROGRAM, QW
     Route: 058
     Dates: start: 201005, end: 201009
  5. PEGINTRON [Suspect]
     Dosage: 108 MICROGRAM, QW
     Route: 058
     Dates: start: 201009
  6. RITUXIMAB [Concomitant]
     Indication: MANTLE CELL LYMPHOMA
     Dosage: UNK
     Dates: start: 20070413
  7. RITUXIMAB [Concomitant]
     Dosage: 375 MG/M2(DAY 1)
  8. RITUXIMAB [Concomitant]
     Dosage: 3 CYCLES
     Dates: start: 2009
  9. BORTEZOMIB [Concomitant]
     Indication: MANTLE CELL LYMPHOMA
     Dosage: 2 CYCLES, 1.3 MG/M2/DOSE (GIVEN ON DAYS 1,5,8 AND 11)
  10. BORTEZOMIB [Concomitant]
     Dosage: 3 CYCLES
     Dates: start: 2009

REACTIONS (4)
  - Thrombocytopenia [Not Recovered/Not Resolved]
  - Graft versus host disease [Unknown]
  - Fatigue [Unknown]
  - Drug tolerance decreased [Unknown]
